FAERS Safety Report 10373673 (Version 1)
Quarter: 2014Q1

REPORT INFORMATION
  Report Type: Spontaneous
  Country: US (occurrence: None)
  Receive Date: 20140306
  Receipt Date: 20140306
  Transmission Date: 20141002
  Serious: Yes (Other)
  Sender: FDA-Public Use
  Company Number: 163-21880-13093693

PATIENT
  Age: 77 Year
  Sex: Male
  Weight: 90.27 kg

DRUGS (4)
  1. REVLIMID [Suspect]
     Indication: PLASMA CELL MYELOMA
     Dosage: 21 IN 28 D
     Route: 048
     Dates: start: 20130513, end: 20130916
  2. ASPIRIN (ACETYLSALICYLIC ACID) (UNKNOWN) (ACETYLSALICYLIC ACID) [Concomitant]
  3. DEXAMETHASONE (UNKNOWN) [Concomitant]
  4. LEVOTHYROXINE (UNKNOWN) [Concomitant]

REACTIONS (2)
  - Anaemia [None]
  - Fatigue [None]
